FAERS Safety Report 16962493 (Version 2)
Quarter: 2020Q1

REPORT INFORMATION
  Report Type: Report from Study
  Country: BR (occurrence: BR)
  Receive Date: 20191025
  Receipt Date: 20200102
  Transmission Date: 20200409
  Serious: Yes (Other)
  Sender: FDA-Public Use
  Company Number: BR-UCBSA-2017034451

PATIENT
  Sex: Female
  Weight: 32 kg

DRUGS (6)
  1. LEVETIRACETAM. [Suspect]
     Active Substance: LEVETIRACETAM
     Indication: EPILEPSY
     Dosage: 450 MG, 3X/DAY (TID)
     Route: 048
     Dates: start: 2014
  2. LEVETIRACETAM. [Suspect]
     Active Substance: LEVETIRACETAM
     Dosage: UNK, 2X/DAY (BID)
     Route: 048
  3. LAMOTRIGINA [Concomitant]
     Active Substance: LAMOTRIGINE
     Indication: EPILEPSY
     Dosage: 50 MG, 3X/DAY (TID)
     Dates: start: 2014
  4. CLOBAZAM. [Concomitant]
     Active Substance: CLOBAZAM
     Indication: PRODUCT USED FOR UNKNOWN INDICATION
     Dosage: 10 MG, 2X/DAY (BID)
  5. LAMOTRIGINA [Concomitant]
     Active Substance: LAMOTRIGINE
     Dosage: 50 MG, 3X/DAY (TID)
  6. AZATIOPRINA [Concomitant]
     Active Substance: AZATHIOPRINE
     Indication: TRANSPLANT
     Dosage: UNK

REACTIONS (4)
  - Seizure [Recovered/Resolved]
  - Renal disorder [Unknown]
  - Off label use [Unknown]
  - Product quality issue [Unknown]

NARRATIVE: CASE EVENT DATE: 2014
